FAERS Safety Report 11469855 (Version 2)
Quarter: 2015Q4

REPORT INFORMATION
  Report Type: Other
  Country: GB (occurrence: GB)
  Receive Date: 20150908
  Receipt Date: 20151021
  Transmission Date: 20160304
  Serious: Yes (Hospitalization, Other)
  Sender: FDA-Public Use
  Company Number: GB-MYLANLABS-2015M1029163

PATIENT

DRUGS (3)
  1. ALENDRONATE [Suspect]
     Active Substance: ALENDRONATE SODIUM
     Indication: OSTEOPOROSIS
     Dosage: 70 MG, QW
     Route: 048
     Dates: start: 20150428, end: 20150517
  2. CALCEOS [Concomitant]
     Active Substance: CALCIUM CARBONATE\CHOLECALCIFEROL
     Indication: OSTEOPOROSIS
     Dosage: UNK
     Dates: start: 20150428
  3. SIMVASTATIN. [Concomitant]
     Active Substance: SIMVASTATIN
     Indication: LIPIDS INCREASED
     Dosage: UNK
     Dates: start: 201110

REACTIONS (2)
  - Foreign body [Recovered/Resolved]
  - Epiglottitis [Recovered/Resolved]

NARRATIVE: CASE EVENT DATE: 20150517
